FAERS Safety Report 25031773 (Version 1)
Quarter: 2025Q1

REPORT INFORMATION
  Report Type: Spontaneous
  Country: US (occurrence: None)
  Receive Date: 20250302
  Receipt Date: 20250302
  Transmission Date: 20250409
  Serious: No
  Sender: FDA-CTU
  Company Number: None

PATIENT
  Age: 67 Year
  Sex: Female
  Weight: 56.25 kg

DRUGS (7)
  1. OSELTAMIVIR PHOSPHATE [Suspect]
     Active Substance: OSELTAMIVIR PHOSPHATE
     Indication: Antiviral prophylaxis
     Dosage: 10 CAPSULES DAILY ORAL
     Route: 048
     Dates: start: 20250131, end: 20250201
  2. SYNTHROID [Concomitant]
     Active Substance: LEVOTHYROXINE SODIUM
  3. OLMESARTAN [Concomitant]
     Active Substance: OLMESARTAN
  4. ESTRADIOL [Concomitant]
     Active Substance: ESTRADIOL
  5. VALTREX [Concomitant]
     Active Substance: VALACYCLOVIR HYDROCHLORIDE
  6. VITAMIN D [Concomitant]
     Active Substance: VITAMIN D NOS
  7. MULTIVITAMIN WOMENS [Concomitant]

REACTIONS (5)
  - Headache [None]
  - Nausea [None]
  - Diarrhoea [None]
  - Paraesthesia [None]
  - Drug hypersensitivity [None]

NARRATIVE: CASE EVENT DATE: 20250131
